FAERS Safety Report 16200856 (Version 1)
Quarter: 2019Q2

REPORT INFORMATION
  Report Type: Spontaneous
  Country: US (occurrence: US)
  Receive Date: 20190416
  Receipt Date: 20190416
  Transmission Date: 20190711
  Serious: No
  Sender: FDA-Public Use
  Company Number: US-BION-007019

PATIENT
  Sex: Male

DRUGS (2)
  1. GENUINE BAYER ASPIRIN 325MG CAPLETS UNKN [Concomitant]
     Indication: COAGULOPATHY
     Route: 065
  2. ALEVE [Suspect]
     Active Substance: NAPROXEN SODIUM
     Indication: INFLAMMATION
     Route: 065

REACTIONS (1)
  - Incorrect product administration duration [Not Recovered/Not Resolved]
